FAERS Safety Report 7134479-1 (Version None)
Quarter: 2010Q4

REPORT INFORMATION
  Report Type: 
  Country: None (occurrence: None)
  Receive Date: 20101203
  Receipt Date: 20101130
  Transmission Date: 20110411
  Serious: Yes (Hospitalization, Other)
  Sender: FDA-Public Use
  Company Number: US-PFIZER INC-2010162240

PATIENT
  Sex: Male
  Weight: 113.4 kg

DRUGS (8)
  1. SUTENT [Suspect]
     Indication: RENAL CELL CARCINOMA
     Dosage: UNK
     Route: 048
     Dates: start: 20060726, end: 20101006
  2. FENOFIBRIC ACID [Concomitant]
     Indication: BLOOD CHOLESTEROL
     Dosage: UNK
     Dates: start: 20100101, end: 20101006
  3. FENOFIBRIC ACID [Concomitant]
     Indication: BLOOD TRIGLYCERIDES
  4. ALLOPURINOL [Concomitant]
  5. COLCHICINE [Concomitant]
  6. ASCORBIC ACID [Concomitant]
  7. ATENOLOL [Concomitant]
     Indication: HYPERTENSION
  8. GEMFIBROZIL [Concomitant]
     Indication: HYPERTENSION
     Dosage: UNK

REACTIONS (13)
  - BLISTER [None]
  - DIARRHOEA [None]
  - DYSGEUSIA [None]
  - HEADACHE [None]
  - NASAL CONGESTION [None]
  - NAUSEA [None]
  - PAIN IN EXTREMITY [None]
  - PALMAR-PLANTAR ERYTHRODYSAESTHESIA SYNDROME [None]
  - PROSTATOMEGALY [None]
  - RASH [None]
  - SKIN IRRITATION [None]
  - URETERIC OBSTRUCTION [None]
  - WOUND HAEMORRHAGE [None]
